FAERS Safety Report 13354255 (Version 1)
Quarter: 2017Q1

REPORT INFORMATION
  Report Type: Spontaneous
  Country: None (occurrence: US)
  Receive Date: 20170318
  Receipt Date: 20170318
  Transmission Date: 20170429
  Serious: Yes (Hospitalization)
  Sender: FDA-Public Use
  Company Number: None

PATIENT
  Age: 31 Year
  Sex: Male
  Weight: 60.32 kg

DRUGS (5)
  1. CYCLOPHOSPHAMIDE. [Suspect]
     Active Substance: CYCLOPHOSPHAMIDE
     Dates: end: 20170217
  2. CYTARABINE. [Suspect]
     Active Substance: CYTARABINE
     Dates: end: 20170113
  3. ONCASPAR [Suspect]
     Active Substance: PEGASPARGASE
     Dates: end: 20170117
  4. MERCAPTOPURINE. [Suspect]
     Active Substance: MERCAPTOPURINE
     Dates: end: 20170116
  5. METHOTREXATE. [Suspect]
     Active Substance: METHOTREXATE
     Dates: end: 20170124

REACTIONS (5)
  - Back pain [None]
  - Pain [None]
  - Nausea [None]
  - Dehydration [None]
  - Headache [None]

NARRATIVE: CASE EVENT DATE: 20170314
